FAERS Safety Report 4874739-8 (Version None)
Quarter: 2006Q1

REPORT INFORMATION
  Report Type: 
  Country: None (occurrence: None)
  Receive Date: 20060103
  Receipt Date: 20060103
  Transmission Date: 20060701
  Serious: Yes (Hospitalization, Other)
  Sender: FDA-Public Use
  Company Number: None

PATIENT
  Sex: Female
  Weight: 48 kg

DRUGS (5)
  1. CYTARABINE [Suspect]
     Indication: ACUTE LYMPHOCYTIC LEUKAEMIA
     Dosage: SEE IMAGE
     Dates: start: 20051114
  2. CYTARABINE [Suspect]
     Indication: ACUTE LYMPHOCYTIC LEUKAEMIA
     Dosage: SEE IMAGE
     Dates: start: 20051115
  3. ALLOPURINOL [Suspect]
     Dosage: SEE IMAGE
     Dates: start: 20051123
  4. DAUNORUBICIN [Suspect]
     Dosage: SEE IMAGE
     Dates: start: 20051117
  5. DEXAMETHASONE TAB [Suspect]
     Dosage: SEE IMAGE
     Dates: start: 20051204

REACTIONS (4)
  - ENDOCARDITIS BACTERIAL [None]
  - METHICILLIN-RESISTANT STAPHYLOCOCCAL AUREUS TEST POSITIVE [None]
  - MITRAL VALVE REPLACEMENT [None]
  - RENAL FAILURE [None]
